FAERS Safety Report 5714276-1 (Version None)
Quarter: 2008Q2

REPORT INFORMATION
  Report Type: 
  Country: None (occurrence: None)
  Receive Date: 20080422
  Receipt Date: 20080422
  Transmission Date: 20081010
  Serious: No
  Sender: FDA-Public Use
  Company Number: None

PATIENT
  Age: 58 Year
  Sex: Male

DRUGS (2)
  1. CHLORPHENIRAMINE MALEATE [Suspect]
     Dosage: 4 MG QID PO
     Route: 048
     Dates: start: 20071210, end: 20080204
  2. NORTRIPTYLINE HCL [Suspect]
     Dosage: 100 MG HS PO
     Route: 048
     Dates: start: 20070809, end: 20080320

REACTIONS (2)
  - DIZZINESS [None]
  - SEDATION [None]
